FAERS Safety Report 8019613-3 (Version None)
Quarter: 2012Q1

REPORT INFORMATION
  Report Type: 
  Country: None (occurrence: None)
  Receive Date: 20120103
  Receipt Date: 20111221
  Transmission Date: 20120608
  Serious: Yes (Hospitalization)
  Sender: FDA-Public Use
  Company Number: US-GLAXOSMITHKLINE-A0920377A

PATIENT
  Age: 60 Year
  Sex: Male

DRUGS (4)
  1. INSULIN [Concomitant]
  2. GLIMEPIRIDE [Concomitant]
  3. AVANDIA [Suspect]
     Indication: DIABETES MELLITUS
     Dosage: 4MG PER DAY
     Route: 048
     Dates: start: 20030901, end: 20100831
  4. CRESTOR [Concomitant]

REACTIONS (5)
  - CORONARY ARTERY OCCLUSION [None]
  - MYOCARDIAL INFARCTION [None]
  - ACUTE CORONARY SYNDROME [None]
  - MYOCARDIAL ISCHAEMIA [None]
  - HYPERTENSION [None]
